FAERS Safety Report 9409900 (Version 3)
Quarter: 2013Q3

REPORT INFORMATION
  Report Type: Spontaneous
  Country: IT (occurrence: IT)
  Receive Date: 20130719
  Receipt Date: 20130910
  Transmission Date: 20140515
  Serious: Yes (Hospitalization)
  Sender: FDA-Public Use
  Company Number: IT-SANOFI-AVENTIS-2013SA070089

PATIENT
  Age: 84 Year
  Sex: Female

DRUGS (12)
  1. FUROSEMIDE [Suspect]
     Indication: HYPERTENSIVE CARDIOMYOPATHY
     Route: 048
     Dates: start: 20020109, end: 20130613
  2. NEBIVOLOL [Suspect]
     Indication: HYPERTENSIVE CARDIOMYOPATHY
     Route: 048
     Dates: start: 20020109, end: 20130613
  3. LISINOPRIL [Suspect]
     Indication: HYPERTENSIVE CARDIOMYOPATHY
     Route: 048
     Dates: start: 20020109, end: 20130613
  4. LASITONE [Suspect]
     Indication: HYPERTENSIVE CARDIOMYOPATHY
     Dosage: DOSE:1 UNIT(S)
     Route: 048
     Dates: start: 20020109, end: 20130613
  5. OLANZAPINE [Concomitant]
     Route: 048
  6. METHOTREXATE [Concomitant]
     Indication: RHEUMATOID ARTHRITIS
  7. METFORMIN HYDROCHLORIDE [Concomitant]
     Indication: TYPE 2 DIABETES MELLITUS
     Route: 048
  8. ALLOPURINOL [Concomitant]
     Route: 048
  9. AMINOPHYLLINE [Concomitant]
  10. CITALOPRAM [Concomitant]
     Route: 048
  11. DELTACORTENE [Concomitant]
     Indication: RHEUMATOID ARTHRITIS
     Route: 048
  12. EUTIROX [Concomitant]
     Indication: HYPOTHYROIDISM
     Route: 048

REACTIONS (3)
  - Renal failure acute [Recovered/Resolved]
  - Hypotension [Recovered/Resolved]
  - Bradycardia [Recovered/Resolved]
